FAERS Safety Report 14756502 (Version 1)
Quarter: 2018Q2

REPORT INFORMATION
  Report Type: Spontaneous
  Country: US (occurrence: US)
  Receive Date: 20180407
  Receipt Date: 20180407
  Transmission Date: 20180711
  Serious: Yes (Disabling)
  Sender: FDA-Public Use
  Company Number: None

PATIENT
  Age: 66 Year
  Sex: Male
  Weight: 98 kg

DRUGS (12)
  1. ELIQUIS [Concomitant]
     Active Substance: APIXABAN
  2. VALACYCLOVIR [Suspect]
     Active Substance: VALACYCLOVIR HYDROCHLORIDE
     Indication: HERPES ZOSTER
     Dosage: ?          QUANTITY:1 TABLET(S);?
     Route: 048
     Dates: start: 20180328, end: 20180329
  3. METOPROLOL SUCCINATE. [Concomitant]
     Active Substance: METOPROLOL SUCCINATE
  4. VITAMIN D3 [Concomitant]
     Active Substance: CHOLECALCIFEROL
  5. AURYXIA [Concomitant]
     Active Substance: TETRAFERRIC TRICITRATE DECAHYDRATE
  6. ASPIRIN. [Concomitant]
     Active Substance: ASPIRIN
  7. RENA-VITE [Concomitant]
     Active Substance: ASCORBIC ACID\BIOTIN\CALCIUM PANTOTHENATE\CYANOCOBALAMIN\FOLIC ACID\NIACINAMIDE\PYRIDOXINE HYDROCHLORIDE\RIBOFLAVIN\THIAMINE MONONITRATE
  8. CALCITRIOL. [Concomitant]
     Active Substance: CALCITRIOL
  9. SENSIPAR [Concomitant]
     Active Substance: CINACALCET HYDROCHLORIDE
  10. LASIX 80MG [Concomitant]
  11. PRAVASTATIN. [Concomitant]
     Active Substance: PRAVASTATIN
  12. VENLAFAXINE [Concomitant]
     Active Substance: VENLAFAXINE HYDROCHLORIDE

REACTIONS (14)
  - Insomnia [None]
  - Tremor [None]
  - Confusional state [None]
  - Nervousness [None]
  - Muscle spasticity [None]
  - Hallucination [None]
  - Hallucination, auditory [None]
  - Anxiety [None]
  - Nausea [None]
  - Vomiting [None]
  - Hallucination, visual [None]
  - Pallor [None]
  - Hypophagia [None]
  - Feeling abnormal [None]

NARRATIVE: CASE EVENT DATE: 20180328
